FAERS Safety Report 5811618-3 (Version None)
Quarter: 2008Q3

REPORT INFORMATION
  Report Type: 
  Country: None (occurrence: None)
  Receive Date: 20080711
  Receipt Date: 20080711
  Transmission Date: 20090109
  Serious: Yes (Other)
  Sender: FDA-Public Use
  Company Number: None

PATIENT
  Age: 64 Year
  Sex: Female

DRUGS (2)
  1. AGGRENOX [Suspect]
     Indication: CEREBROVASCULAR ACCIDENT
     Dosage: 200 - 25MG CAPS 1 Q 12 HR MOUTH
     Route: 048
  2. AGGRENOX [Suspect]
     Indication: PLASMA VISCOSITY DECREASED
     Dosage: 200 - 25MG CAPS 1 Q 12 HR MOUTH
     Route: 048

REACTIONS (3)
  - DIZZINESS [None]
  - HEADACHE [None]
  - VOMITING [None]
